FAERS Safety Report 5384365-2 (Version None)
Quarter: 2007Q3

REPORT INFORMATION
  Report Type: 
  Country: None (occurrence: None)
  Receive Date: 20070710
  Receipt Date: 20061016
  Transmission Date: 20080115
  Serious: Yes (Other)
  Sender: FDA-Public Use
  Company Number: 2006-02507

PATIENT
  Age: 76 Year
  Sex: Male
  Weight: 66.6 kg

DRUGS (7)
  1. VELCADE [Suspect]
     Indication: DRUG USE FOR UNKNOWN INDICATION
     Dosage: INTRAVENOUS
     Route: 042
  2. IMDUR [Concomitant]
  3. METOPROLOL TARTRATE [Concomitant]
  4. DEMADEX [Concomitant]
  5. LIPITOR [Concomitant]
  6. COUMADIN [Concomitant]
  7. CORTICOSTEROID NOS (CORTICOSTEDROID NOS) [Concomitant]

REACTIONS (1)
  - RENAL FAILURE [None]
